FAERS Safety Report 18403914 (Version 1)
Quarter: 2020Q4

REPORT INFORMATION
  Report Type: Report from Study
  Country: IN (occurrence: IN)
  Receive Date: 20201020
  Receipt Date: 20201020
  Transmission Date: 20210114
  Serious: Yes (Other)
  Sender: FDA-Public Use
  Company Number: NVSC2019IN031006

PATIENT
  Age: 55 Year
  Sex: Male

DRUGS (6)
  1. MONTAIR LC [Suspect]
     Active Substance: LEVOCETIRIZINE DIHYDROCHLORIDE\MONTELUKAST SODIUM
     Indication: PRODUCT USED FOR UNKNOWN INDICATION
     Dosage: UNK, QD
     Route: 048
     Dates: start: 1998
  2. CARDIVAS [CARVEDILOL] [Suspect]
     Active Substance: CARVEDILOL
     Indication: PRODUCT USED FOR UNKNOWN INDICATION
     Dosage: 3.25 MG, BID
     Route: 048
     Dates: start: 1998
  3. VYMADA [Suspect]
     Active Substance: SACUBITRIL\VALSARTAN
     Indication: CARDIAC FAILURE
     Dosage: 0.5 DF (50 MG), BID
     Route: 048
     Dates: start: 20191024
  4. ECOSPRIN AV [Suspect]
     Active Substance: ASPIRIN\ATORVASTATIN
     Indication: PRODUCT USED FOR UNKNOWN INDICATION
     Dosage: 75 MG, QD
     Route: 048
     Dates: start: 1998
  5. PANTOPRAZOLE [PANTOPRAZOLE SODIUM SEQUIHYDRATE] [Suspect]
     Active Substance: PANTOPRAZOLE SODIUM
     Indication: PRODUCT USED FOR UNKNOWN INDICATION
     Dosage: UNK, QD
     Route: 048
  6. VYMADA [Suspect]
     Active Substance: SACUBITRIL\VALSARTAN
     Indication: CARDIAC FAILURE CHRONIC
     Dosage: 0.5 DF (50 MG), BID
     Route: 048
     Dates: start: 2018

REACTIONS (6)
  - Dyspnoea [Unknown]
  - Prescribed underdose [Unknown]
  - Mucous stools [Unknown]
  - Cough [Unknown]
  - Haematochezia [Unknown]
  - Wrong technique in product usage process [Unknown]

NARRATIVE: CASE EVENT DATE: 202005
